FAERS Safety Report 4891217-0 (Version None)
Quarter: 2006Q1

REPORT INFORMATION
  Report Type: 
  Country: None (occurrence: None)
  Receive Date: 20060125
  Receipt Date: 20060110
  Transmission Date: 20060701
  Serious: Yes (Death)
  Sender: FDA-Public Use
  Company Number: HQWYE292011JAN06

PATIENT
  Sex: Male

DRUGS (11)
  1. ENBREL [Suspect]
     Indication: RHEUMATOID ARTHRITIS
     Route: 058
     Dates: start: 20050520
  2. ENBREL [Suspect]
     Route: 058
     Dates: start: 20050520, end: 20050614
  3. ENBREL [Suspect]
     Route: 058
     Dates: start: 20050708, end: 20050902
  4. BETAMETHASONE [Concomitant]
     Indication: DRUG USE FOR UNKNOWN INDICATION
     Route: 065
     Dates: start: 20050301
  5. RHEUMATREX [Concomitant]
     Dosage: DOSE AND FREQUENCY UNKNOWN
     Route: 065
     Dates: start: 20050401, end: 20060109
  6. RHEUMATREX [Concomitant]
     Dosage: DOSE AND FREQUENCY UNKNOWN
     Route: 048
     Dates: end: 20060109
  7. SULFASALAZINE [Concomitant]
     Dosage: DOSE AND FREQUENCY UNKNOWN
     Route: 065
  8. TACROLIMUS [Concomitant]
     Dosage: DOSE AND FREQUENCY UNKNOWN
     Route: 065
  9. PREDNISOLONE [Concomitant]
     Dosage: DOSE AND FREQUENCY UNKNOWN
     Route: 065
  10. VOLTAREN [Concomitant]
     Dosage: DOSE AND FREQUENCY UNKNOWN
     Route: 065
  11. RITUXAN [Concomitant]
     Dosage: DOSE AND FREQUENCY UNKNOWN
     Route: 065
     Dates: start: 20051228, end: 20060109

REACTIONS (1)
  - CARDIAC TAMPONADE [None]
